FAERS Safety Report 6613278-0 (Version None)
Quarter: 2010Q1

REPORT INFORMATION
  Report Type: 
  Country: None (occurrence: None)
  Receive Date: 20100304
  Receipt Date: 20100224
  Transmission Date: 20100710
  Serious: Yes (Death, Hospitalization)
  Sender: FDA-Public Use
  Company Number: US-BRISTOL-MYERS SQUIBB COMPANY-14961163

PATIENT
  Age: 70 Year
  Sex: Male
  Weight: 43 kg

DRUGS (13)
  1. PACLITAXEL [Suspect]
     Indication: NON-SMALL CELL LUNG CANCER
     Dosage: DAY 1 EVERY 21 DAYS
     Route: 042
     Dates: start: 20090814
  2. CARBOPLATIN [Suspect]
     Indication: NON-SMALL CELL LUNG CANCER
     Dosage: 1 DF= 6AUC, DAY 1 EVERY 21 DAYS
     Route: 042
     Dates: start: 20090814
  3. BEVACIZUMAB [Suspect]
     Indication: NON-SMALL CELL LUNG CANCER
     Dosage: DAY 1 EVERY 21 DAYS
     Route: 042
     Dates: start: 20090814
  4. ZOFRAN [Concomitant]
     Indication: NAUSEA
  5. ZOFRAN [Concomitant]
     Indication: VOMITING
  6. ZOMETA [Concomitant]
     Indication: BONE PAIN
     Dates: start: 20090818
  7. FERRLECIT [Concomitant]
     Indication: ANAEMIA
  8. ZETIA [Concomitant]
     Indication: HYPERTENSION
  9. CRESTOR [Concomitant]
  10. COREG [Concomitant]
     Indication: HYPERTENSION
  11. METFORMIN HYDROCHLORIDE [Concomitant]
     Indication: DIABETES MELLITUS
  12. COLACE [Concomitant]
     Dates: start: 20090814
  13. IMODIUM [Concomitant]
     Indication: DIARRHOEA

REACTIONS (4)
  - ANAEMIA [None]
  - DEATH [None]
  - DEHYDRATION [None]
  - RENAL FAILURE ACUTE [None]
